FAERS Safety Report 16317589 (Version 1)
Quarter: 2019Q2

REPORT INFORMATION
  Report Type: Spontaneous
  Country: AU (occurrence: AU)
  Receive Date: 20190516
  Receipt Date: 20190516
  Transmission Date: 20190711
  Serious: Yes (Other)
  Sender: FDA-Public Use
  Company Number: AU-ROCHE-2316488

PATIENT
  Sex: Female

DRUGS (12)
  1. SOMAC [Concomitant]
     Active Substance: PANTOPRAZOLE SODIUM
     Dosage: ONGOING
     Route: 065
  2. METOPROLOL. [Concomitant]
     Active Substance: METOPROLOL
     Indication: ESSENTIAL TREMOR
     Dosage: 100MG (50 X 2)  ONGOING
     Route: 065
     Dates: start: 20151006
  3. PREDNISOLONE. [Concomitant]
     Active Substance: PREDNISOLONE
     Indication: RHEUMATOID ARTHRITIS
     Dosage: MANE, ONGOING
     Route: 065
     Dates: start: 20170606
  4. RIVAROXABAN [Concomitant]
     Active Substance: RIVAROXABAN
     Indication: ATRIAL FIBRILLATION
     Dosage: IN MORNING , ONGOING
     Route: 065
     Dates: start: 20190501
  5. TOCILIZUMAB. [Suspect]
     Active Substance: TOCILIZUMAB
     Indication: RHEUMATOID ARTHRITIS
     Dosage: 400MG/20 ML, ON HOLD SINCE OCT-2018
     Route: 042
     Dates: start: 20171101, end: 20181001
  6. LYRICA [Concomitant]
     Active Substance: PREGABALIN
     Indication: FIBROMYALGIA
     Dosage: 150MG IN MORNING AND 400MG IN NIGHT, ONGOING
     Route: 065
     Dates: start: 20170606
  7. FERINJECT [Concomitant]
     Active Substance: FERRIC CARBOXYMALTOSE
     Indication: IRON DEFICIENCY
     Dosage: 500MG/10ML, ONGOING
     Route: 065
     Dates: start: 20170606
  8. FENTANYL. [Concomitant]
     Active Substance: FENTANYL
     Indication: FIBROMYALGIA
     Dosage: 25MCG/ HOUR   (4.125MG) , ONGOING
     Route: 065
     Dates: start: 20151006
  9. LASIX [Concomitant]
     Active Substance: FUROSEMIDE
     Indication: ATRIAL FIBRILLATION
     Dosage: ONGOING
     Route: 065
     Dates: start: 20151006
  10. CYMBALTA [Concomitant]
     Active Substance: DULOXETINE HYDROCHLORIDE
     Dosage: ONGOING
     Route: 065
  11. PANADEINE FORTE [Concomitant]
     Active Substance: ACETAMINOPHEN\CODEINE PHOSPHATE
     Indication: RHEUMATOID ARTHRITIS
     Dosage: PRN (AS REQUIRED), ONGOING
     Route: 065
  12. DIGOXIN. [Concomitant]
     Active Substance: DIGOXIN
     Indication: ATRIAL FIBRILLATION
     Dosage: 62.5 MCG, ONGOING
     Route: 065
     Dates: start: 20151006

REACTIONS (3)
  - Urinary tract infection [Unknown]
  - Osteoporosis [Unknown]
  - Parkinson^s disease [Unknown]
